FAERS Safety Report 6706875-5 (Version None)
Quarter: 2010Q2

REPORT INFORMATION
  Report Type: 
  Country: None (occurrence: None)
  Receive Date: 20100503
  Receipt Date: 20100204
  Transmission Date: 20101027
  Serious: Yes (Death, Hospitalization)
  Sender: FDA-Public Use
  Company Number: CN-BAYER-200938597GPV

PATIENT
  Age: 49 Year
  Sex: Male
  Weight: 52 kg

DRUGS (6)
  1. SORAFENIB [Suspect]
     Indication: HEPATIC NEOPLASM MALIGNANT
     Dosage: TOTAL DAILY DOSE: 800 MG
     Route: 048
     Dates: start: 20090629, end: 20090911
  2. SORAFENIB [Suspect]
     Dosage: TOTAL DAILY DOSE: 400 MG
     Route: 048
     Dates: start: 20090911, end: 20091101
  3. SORAFENIB [Suspect]
     Route: 048
  4. ERLOTINIB OR PLACEBO [Suspect]
     Indication: HEPATIC NEOPLASM MALIGNANT
     Route: 048
  5. ERLOTINIB OR PLACEBO [Suspect]
     Route: 048
     Dates: start: 20090820, end: 20091101
  6. ERLOTINIB OR PLACEBO [Suspect]
     Route: 048
     Dates: start: 20090629, end: 20090820

REACTIONS (2)
  - GASTROINTESTINAL ULCER [None]
  - RENAL FAILURE [None]
